FAERS Safety Report 20881183 (Version 1)
Quarter: 2022Q2

REPORT INFORMATION
  Report Type: Spontaneous
  Country: US (occurrence: US)
  Receive Date: 20220526
  Receipt Date: 20220526
  Transmission Date: 20220720
  Serious: No
  Sender: FDA-Public Use
  Company Number: US-RADIUS HEALTH INC.-2022US000140

PATIENT
  Sex: Female

DRUGS (11)
  1. TYMLOS [Suspect]
     Active Substance: ABALOPARATIDE
     Indication: Osteoporosis
     Dosage: 80 MCG, QD
     Route: 058
     Dates: start: 202108, end: 20220110
  2. VITAMIN D [Concomitant]
     Active Substance: VITAMIN D NOS
     Indication: Product used for unknown indication
     Dosage: 125 MCG/5000UT, ONE CAPSULE TWICE WEEKLY
     Route: 048
  3. COENZYME Q10 [Concomitant]
     Active Substance: DIETARY SUPPLEMENT\UBIDECARENONE
     Indication: Product used for unknown indication
     Dosage: 200 MG ORAL CAPSULE QD
     Route: 048
  4. PROLIA [Concomitant]
     Active Substance: DENOSUMAB
     Indication: Product used for unknown indication
     Dosage: 60 MG/ML SUBCUTANEOUS SOLUTION PREFILLED SYRINGE
     Route: 058
  5. DUPIXENT [Concomitant]
     Active Substance: DUPILUMAB
     Indication: Product used for unknown indication
     Dosage: 300 MG/ 2 ML; 300 MG SQ EVERY 2 WEEKS
     Route: 058
  6. FLUVASTATIN SODIUM [Concomitant]
     Active Substance: FLUVASTATIN SODIUM
     Indication: Product used for unknown indication
     Dosage: 40 MG CAPSULE BY MOUTH 3 X WEEK
     Route: 048
  7. VITAMIN K2 [MENATETRENONE] [Concomitant]
     Indication: Product used for unknown indication
     Dosage: 100 MCG ONCE A DAY, ORAL
     Route: 048
  8. MINERALS\VITAMINS [Concomitant]
     Active Substance: MINERALS\VITAMINS
     Indication: Product used for unknown indication
     Dosage: ONCE A DAY
     Route: 048
  9. OMEGA-3 FATTY ACIDS (Fish oil) [Concomitant]
     Indication: Product used for unknown indication
     Dosage: 1 CAPSULE, 1360 MG BY MOUTH DAILY
     Route: 048
  10. PROBIOTICS NOS [Concomitant]
     Active Substance: PROBIOTICS NOS
     Indication: Product used for unknown indication
     Dosage: ONCE A DAY
     Route: 048
  11. VALTREX [Concomitant]
     Active Substance: VALACYCLOVIR HYDROCHLORIDE
     Indication: Product used for unknown indication
     Dosage: ONE TABLET BID X 3 DAYS
     Route: 048

REACTIONS (3)
  - Ventricular extrasystoles [Recovered/Resolved]
  - Blood cholesterol increased [Unknown]
  - Palpitations [Unknown]
